FAERS Safety Report 16055193 (Version 2)
Quarter: 2019Q2

REPORT INFORMATION
  Report Type: Spontaneous
  Country: SE (occurrence: SE)
  Receive Date: 20190311
  Receipt Date: 20190512
  Transmission Date: 20190711
  Serious: Yes (Death, Hospitalization)
  Sender: FDA-Public Use
  Company Number: PHHY2019SE053597

PATIENT
  Sex: Male

DRUGS (3)
  1. NOXAFIL [Concomitant]
     Active Substance: POSACONAZOLE
     Indication: ACUTE MYELOID LEUKAEMIA
     Dosage: 300 MG, BID
     Route: 048
     Dates: start: 20190207
  2. RYDAPT [Suspect]
     Active Substance: MIDOSTAURIN
     Indication: ACUTE MYELOID LEUKAEMIA
     Dosage: 50 MG, BID
     Route: 048
     Dates: start: 20190208
  3. NOXAFIL [Concomitant]
     Active Substance: POSACONAZOLE
     Indication: PROPHYLAXIS

REACTIONS (9)
  - Urinary retention [Unknown]
  - Haematuria [Not Recovered/Not Resolved]
  - Sepsis [Not Recovered/Not Resolved]
  - Blood creatinine increased [Unknown]
  - Renal failure [Not Recovered/Not Resolved]
  - Urinary bladder haemorrhage [Unknown]
  - Platelet count decreased [Unknown]
  - Septic shock [Fatal]
  - C-reactive protein increased [Unknown]

NARRATIVE: CASE EVENT DATE: 20190216
